FAERS Safety Report 6635027-2 (Version None)
Quarter: 2010Q1

REPORT INFORMATION
  Report Type: 
  Country: None (occurrence: None)
  Receive Date: 20100311
  Receipt Date: 20100311
  Transmission Date: 20100710
  Serious: Yes (Other)
  Sender: FDA-Public Use
  Company Number: None

PATIENT
  Age: 49 Year
  Sex: Male
  Weight: 97.5234 kg

DRUGS (1)
  1. PRISTIQ [Suspect]
     Indication: DEPRESSION
     Dosage: 50MG 1XDAY
     Dates: start: 20080101, end: 20100301

REACTIONS (13)
  - ABDOMINAL DISCOMFORT [None]
  - BLOOD CHOLESTEROL INCREASED [None]
  - BLOOD PRESSURE INCREASED [None]
  - DIABETES MELLITUS [None]
  - DISORIENTATION [None]
  - DISTURBANCE IN ATTENTION [None]
  - DIZZINESS [None]
  - ELECTRIC SHOCK [None]
  - FEELING OF BODY TEMPERATURE CHANGE [None]
  - FEELING OF DESPAIR [None]
  - PARAESTHESIA [None]
  - THINKING ABNORMAL [None]
  - TREMOR [None]
